FAERS Safety Report 8849121 (Version 1)
Quarter: 2012Q4

REPORT INFORMATION
  Report Type: Spontaneous
  Country: US (occurrence: None)
  Receive Date: 20121017
  Receipt Date: 20121017
  Transmission Date: 20130627
  Serious: No
  Sender: FDA-Public Use
  Company Number: None

PATIENT
  Age: 53 Year
  Sex: Female

DRUGS (11)
  1. DOCETAXEL [Suspect]
     Indication: BREAST CANCER
     Dosage: 75 mg/m2, once, IV
     Route: 042
     Dates: start: 20111129, end: 20111129
  2. WELLBUTRIN [Concomitant]
  3. LEXAPRO [Concomitant]
  4. KLOR-CON [Concomitant]
  5. HCTZ [Concomitant]
  6. MIRAPEX [Concomitant]
  7. DECADRON [Concomitant]
  8. ZOFRAN [Concomitant]
  9. COMPAZINE [Concomitant]
  10. CYTOXAN [Concomitant]
  11. NEULASTA [Concomitant]

REACTIONS (1)
  - Infusion site extravasation [None]
